FAERS Safety Report 23812888 (Version 1)
Quarter: 2024Q2

REPORT INFORMATION
  Report Type: Spontaneous
  Country: CN (occurrence: None)
  Receive Date: 20240503
  Receipt Date: 20240503
  Transmission Date: 20240716
  Serious: Yes (Other)
  Sender: FDA-Public Use
  Company Number: CN-ROCHE-3551172

PATIENT
  Age: 67 Year
  Sex: Male

DRUGS (13)
  1. AVASTIN [Suspect]
     Active Substance: BEVACIZUMAB
     Indication: Lung neoplasm malignant
     Route: 065
     Dates: start: 20231017
  2. PD-L1 (UNK INGREDIENTS) [Concomitant]
     Indication: Lung neoplasm malignant
     Dosage: 17-OCT-2023
     Dates: start: 20230809
  3. PEMETREXED [Concomitant]
     Active Substance: PEMETREXED
     Indication: Lung neoplasm malignant
     Dates: start: 20230809
  4. CARBOPLATIN [Concomitant]
     Active Substance: CARBOPLATIN
     Indication: Lung neoplasm malignant
     Dates: start: 20230809
  5. TAXOL [Concomitant]
     Active Substance: PACLITAXEL
     Indication: Lung neoplasm malignant
     Dosage: 13-DEC-2023
     Dates: start: 20230924
  6. NEDAPLATIN [Concomitant]
     Active Substance: NEDAPLATIN
     Indication: Lung neoplasm malignant
     Dates: start: 20230924
  7. GEMCITABINE [Concomitant]
     Active Substance: GEMCITABINE
     Indication: Lung neoplasm malignant
     Dates: start: 20231017
  8. CISPLATIN [Concomitant]
     Active Substance: CISPLATIN
     Indication: Lung neoplasm malignant
     Dates: start: 20231017
  9. LENVATINIB [Concomitant]
     Active Substance: LENVATINIB
     Indication: Lung neoplasm malignant
     Dosage: 05-JAN-2024
     Dates: start: 20231213
  10. PACLITAXEL [Concomitant]
     Active Substance: PACLITAXEL
     Indication: Lung neoplasm malignant
     Dates: start: 20240105
  11. TRAMETINIB [Concomitant]
     Active Substance: TRAMETINIB
     Indication: Lung neoplasm malignant
     Dosage: 22-MAR-2024
     Dates: start: 20240105
  12. DENOSUMAB [Concomitant]
     Active Substance: DENOSUMAB
     Indication: Lung neoplasm malignant
     Dosage: 22-MAR-2024
     Dates: start: 20240105
  13. CATEQUENTINIB [Concomitant]
     Active Substance: CATEQUENTINIB

REACTIONS (8)
  - Metastases to pleura [Unknown]
  - Metastases to bone [Unknown]
  - Myelosuppression [Unknown]
  - Tumour marker increased [Unknown]
  - Off label use [Unknown]
  - Hypoaesthesia [Unknown]
  - Arthralgia [Unknown]
  - Back pain [Unknown]
